FAERS Safety Report 5647496-5 (Version None)
Quarter: 2008Q1

REPORT INFORMATION
  Report Type: 
  Country: None (occurrence: None)
  Receive Date: 20080303
  Receipt Date: 20080219
  Transmission Date: 20080703
  Serious: Yes (Other)
  Sender: FDA-Public Use
  Company Number: CA-GENENTECH-256715

PATIENT
  Sex: Male

DRUGS (1)
  1. AVASTIN [Suspect]
     Indication: DIABETIC RETINAL OEDEMA
     Dosage: 1.25 MG, SINGLE
     Route: 031

REACTIONS (1)
  - INTRAOCULAR PRESSURE INCREASED [None]
